FAERS Safety Report 9788417 (Version 3)
Quarter: 2014Q1

REPORT INFORMATION
  Report Type: Spontaneous
  Country: DE (occurrence: DE)
  Receive Date: 20131230
  Receipt Date: 20140128
  Transmission Date: 20141002
  Serious: Yes (Disabling, Other)
  Sender: FDA-Public Use
  Company Number: PHHY2013DE127443

PATIENT
  Sex: Female

DRUGS (1)
  1. GLIVEC [Suspect]
     Indication: CHRONIC MYELOID LEUKAEMIA
     Dosage: 400 MG, QD
     Route: 048
     Dates: start: 201202

REACTIONS (6)
  - Eye inflammation [Recovered/Resolved]
  - Eye pruritus [Recovering/Resolving]
  - Pruritus genital [Recovering/Resolving]
  - Menopausal disorder [Not Recovered/Not Resolved]
  - Hyperhidrosis [Not Recovered/Not Resolved]
  - Oedema [Recovering/Resolving]
